FAERS Safety Report 7319188-8 (Version None)
Quarter: 2011Q1

REPORT INFORMATION
  Report Type: 
  Country: None (occurrence: None)
  Receive Date: 20110214
  Receipt Date: 20110209
  Transmission Date: 20110831
  Serious: Yes (Life-Threatening, Hospitalization, Disabling, Other)
  Sender: FDA-Public Use
  Company Number: 2010SP038122

PATIENT
  Age: 77 Year
  Sex: Male
  Weight: 65 kg

DRUGS (11)
  1. CARDENALIN [Concomitant]
  2. BAKTAR [Concomitant]
  3. GASTER D [Concomitant]
  4. PREDONINE [Concomitant]
  5. TEMODAL [Suspect]
     Indication: ANAPLASTIC ASTROCYTOMA
     Dosage: (75 MG/M2; QD; PO) (150 MG/M2; QD; PO)
     Route: 048
     Dates: start: 20100519, end: 20100521
  6. TEMODAL [Suspect]
     Indication: ANAPLASTIC ASTROCYTOMA
     Dosage: (75 MG/M2; QD; PO) (150 MG/M2; QD; PO)
     Route: 048
     Dates: start: 20100308, end: 20100419
  7. LASIX [Concomitant]
  8. GASPORT-D (FAMOTIDINE) [Concomitant]
  9. DIOVAN [Concomitant]
  10. MAGNESIUM OXIDE [Concomitant]
  11. EXCEGRAN [Concomitant]

REACTIONS (4)
  - INTERSTITIAL LUNG DISEASE [None]
  - CEREBRAL INFARCTION [None]
  - PNEUMONIA [None]
  - DECREASED APPETITE [None]
